FAERS Safety Report 15792934 (Version 1)
Quarter: 2019Q1

REPORT INFORMATION
  Report Type: Spontaneous
  Country: ES (occurrence: ES)
  Receive Date: 20190107
  Receipt Date: 20190107
  Transmission Date: 20190417
  Serious: Yes (Hospitalization, Other)
  Sender: FDA-Public Use
  Company Number: ES-LUPIN PHARMACEUTICALS INC.-2018-09215

PATIENT
  Age: 39 Year
  Sex: Female

DRUGS (1)
  1. SERTRALINE [Suspect]
     Active Substance: SERTRALINE HYDROCHLORIDE
     Indication: MAJOR DEPRESSION
     Dosage: 100 MG, QD
     Route: 065

REACTIONS (3)
  - Vanishing bile duct syndrome [Recovered/Resolved]
  - Dyslipidaemia [Recovered/Resolved]
  - Drug-induced liver injury [Recovered/Resolved]
